FAERS Safety Report 6148843-0 (Version None)
Quarter: 2009Q2

REPORT INFORMATION
  Report Type: 
  Country: None (occurrence: None)
  Receive Date: 20090408
  Receipt Date: 20090401
  Transmission Date: 20091009
  Serious: Yes (Other)
  Sender: FDA-Public Use
  Company Number: SE-MERCK-0904SWE00001

PATIENT
  Age: 71 Year
  Sex: Male

DRUGS (10)
  1. DOLOBID [Suspect]
     Route: 048
     Dates: start: 20090201, end: 20090201
  2. DOLOBID [Suspect]
     Route: 048
     Dates: start: 20090201, end: 20090201
  3. WARFARIN SODIUM [Suspect]
     Indication: ATRIAL FIBRILLATION
     Route: 048
  4. DUTASTERIDE [Concomitant]
     Route: 065
  5. ENALAPRIL MALEATE [Concomitant]
     Route: 065
  6. SIMVASTATIN [Concomitant]
     Route: 065
  7. DIGOXIN [Concomitant]
     Route: 065
  8. FUROSEMIDE [Concomitant]
     Route: 065
  9. SPIRONOLACTONE [Concomitant]
     Route: 065
  10. BISOPROLOL FUMARATE [Concomitant]
     Route: 065

REACTIONS (2)
  - DRUG INTERACTION [None]
  - PROTHROMBIN LEVEL DECREASED [None]
